FAERS Safety Report 21189358 (Version 3)
Quarter: 2022Q3

REPORT INFORMATION
  Report Type: Spontaneous
  Country: GR (occurrence: GR)
  Receive Date: 20220809
  Receipt Date: 20220823
  Transmission Date: 20221027
  Serious: Yes (Hospitalization, Other)
  Sender: FDA-Public Use
  Company Number: GR-UCBSA-2022045463

PATIENT
  Age: 33 Year
  Sex: Female

DRUGS (11)
  1. CIMZIA [Suspect]
     Active Substance: CERTOLIZUMAB PEGOL
     Indication: Rheumatoid arthritis
     Dosage: 400 MILLIGRAM, EV 2 WEEKS(QOW)
     Route: 058
     Dates: start: 202110, end: 20211124
  2. CIMZIA [Suspect]
     Active Substance: CERTOLIZUMAB PEGOL
     Dosage: 200 MILLIGRAM, EV 2 WEEKS(QOW)
     Route: 058
  3. METHOTREXATE [Concomitant]
     Active Substance: METHOTREXATE
     Indication: Rheumatoid arthritis
     Dosage: UNK
     Dates: end: 20211124
  4. VITAMIN COMPLEX [Concomitant]
     Indication: Rheumatoid arthritis
     Dosage: UNK
     Dates: end: 20211124
  5. TENORMIN [Concomitant]
     Active Substance: ATENOLOL
     Indication: Product used for unknown indication
     Dosage: UNK
  6. CORTISONE [Concomitant]
     Active Substance: CORTISONE
     Indication: Product used for unknown indication
     Dosage: UNK
  7. FOLIC ACID [Concomitant]
     Active Substance: FOLIC ACID
     Indication: Product used for unknown indication
     Dosage: 5 MILLIGRAM, ONCE DAILY (QD)
     Dates: start: 20211125, end: 20211202
  8. BETAMETHASONE DIPROPIONATE\BETAMETHASONE SODIUM PHOSPHATE [Concomitant]
     Active Substance: BETAMETHASONE DIPROPIONATE\BETAMETHASONE SODIUM PHOSPHATE
     Indication: Product used for unknown indication
  9. LORDIN [LORATADINE] [Concomitant]
     Indication: Product used for unknown indication
  10. PIPERACILLIN SODIUM\TAZOBACTAM SODIUM [Concomitant]
     Active Substance: PIPERACILLIN SODIUM\TAZOBACTAM SODIUM
     Indication: Product used for unknown indication
  11. IVOR [IVERMECTIN] [Concomitant]
     Indication: Product used for unknown indication

REACTIONS (12)
  - Tachycardia [Unknown]
  - Dyspnoea [Unknown]
  - Fatigue [Unknown]
  - Pleural effusion [Unknown]
  - Hodgkin^s disease [Unknown]
  - Rheumatoid arthritis [Unknown]
  - Palpitations [Not Recovered/Not Resolved]
  - Night sweats [Unknown]
  - Pulmonary function test decreased [Unknown]
  - Gastritis [Unknown]
  - Illness [Recovered/Resolved]
  - Helicobacter infection [Unknown]

NARRATIVE: CASE EVENT DATE: 20211031
